FAERS Safety Report 17674607 (Version 1)
Quarter: 2020Q2

REPORT INFORMATION
  Report Type: Report from Study
  Country: None (occurrence: US)
  Receive Date: 20200416
  Receipt Date: 20200416
  Transmission Date: 20200714
  Serious: No
  Sender: FDA-Public Use
  Company Number: US-BIOVITRUM-2020US1699

PATIENT
  Sex: Male

DRUGS (1)
  1. KINERET [Suspect]
     Active Substance: ANAKINRA
     Indication: IMMUNE SYSTEM DISORDER
     Route: 058

REACTIONS (4)
  - Rash [Unknown]
  - Injection site pain [Unknown]
  - Off label use [Unknown]
  - Wrong technique in product usage process [Unknown]
